FAERS Safety Report 7564690-7 (Version None)
Quarter: 2011Q2

REPORT INFORMATION
  Report Type: 
  Country: None (occurrence: None)
  Receive Date: 20110622
  Receipt Date: 20100830
  Transmission Date: 20111010
  Serious: Yes (Death)
  Sender: FDA-Public Use
  Company Number: US-MYLANLABS-2010S1016185

PATIENT
  Age: 59 Year
  Sex: Female

DRUGS (17)
  1. VICODIN [Concomitant]
  2. DOCUSATE [Concomitant]
  3. ZYPREXA [Concomitant]
  4. CALCIUM CARBONATE [Concomitant]
  5. CITALOPRAM HYDROBROMIDE [Concomitant]
  6. VISTARIL [Concomitant]
  7. ATIVAN [Concomitant]
  8. LOPRESSOR [Concomitant]
  9. FLOMAX [Concomitant]
  10. GLIPIZIDE [Concomitant]
  11. SENNA [Concomitant]
  12. FAMOTIDINE [Concomitant]
  13. MULTIVITAMIN WITH MINERALS [Concomitant]
  14. TYLENOL-500 [Concomitant]
  15. MYLANTA [Concomitant]
  16. CLOZAPINE [Suspect]
     Route: 048
  17. VITAMIN D [Concomitant]

REACTIONS (1)
  - ASPIRATION [None]
